FAERS Safety Report 15484855 (Version 1)
Quarter: 2018Q4

REPORT INFORMATION
  Report Type: Spontaneous
  Country: US (occurrence: US)
  Receive Date: 20181010
  Receipt Date: 20181010
  Transmission Date: 20190205
  Serious: No
  Sender: FDA-Public Use
  Company Number: US-ROCHE-2018440

PATIENT
  Sex: Male

DRUGS (2)
  1. ZELBORAF [Suspect]
     Active Substance: VEMURAFENIB
     Indication: HISTIOCYTOSIS
     Dosage: TWICE DAILY
     Route: 048
     Dates: start: 20161012, end: 20170921
  2. ZELBORAF [Suspect]
     Active Substance: VEMURAFENIB
     Dosage: DAILY IN DIVIDED DOSES?480 MG IN MORNING AND 240 MG IN EVENING.
     Route: 048
     Dates: start: 20170921

REACTIONS (4)
  - Intentional product misuse [Unknown]
  - Off label use [Unknown]
  - Intentional product use issue [Unknown]
  - No adverse event [Unknown]
